FAERS Safety Report 4847080-7 (Version None)
Quarter: 2005Q4

REPORT INFORMATION
  Report Type: 
  Country: None (occurrence: None)
  Receive Date: 20051206
  Receipt Date: 20051206
  Transmission Date: 20060501
  Serious: Yes (Hospitalization, Disabling)
  Sender: FDA-Public Use
  Company Number: None

PATIENT
  Sex: Male
  Weight: 90.7194 kg

DRUGS (1)
  1. ACCUTANE [Suspect]
     Indication: ACNE
     Dosage: 40MG BID PO
     Route: 048
     Dates: start: 20051010, end: 20051128

REACTIONS (4)
  - BENIGN INTRACRANIAL HYPERTENSION [None]
  - HEADACHE [None]
  - NAUSEA [None]
  - PAPILLOEDEMA [None]
